FAERS Safety Report 14607767 (Version 1)
Quarter: 2018Q1

REPORT INFORMATION
  Report Type: Report from Study
  Country: ES (occurrence: ES)
  Receive Date: 20180307
  Receipt Date: 20180307
  Transmission Date: 20180509
  Serious: Yes (Hospitalization)
  Sender: FDA-Public Use
  Company Number: ES-PFIZER INC-2018088785

PATIENT
  Age: 78 Year
  Sex: Female

DRUGS (14)
  1. PANTOPRAZOL [Concomitant]
     Active Substance: PANTOPRAZOLE SODIUM
     Dosage: 40 MG, 1X/DAY (EVERY 24H, 1-0-0)
     Route: 048
     Dates: start: 20090101
  2. PLAVIX [Concomitant]
     Active Substance: CLOPIDOGREL BISULFATE
     Dosage: 75 MG, 1X/DAY (EVERY 24H, 1-0-0)
     Route: 048
     Dates: start: 20170302
  3. RAMIPRIL. [Concomitant]
     Active Substance: RAMIPRIL
     Dosage: 5 MG, 1X/DAY (EVERY 24H 1-0-0)
     Route: 048
     Dates: start: 20170302
  4. SERTRALINE /01011402/ [Concomitant]
     Active Substance: SERTRALINE HYDROCHLORIDE
     Dosage: 50 MG, 1X/DAY (EVERY 24H, 1-0-0)
     Route: 048
     Dates: start: 20170302
  5. IMUREL /00001501/ [Concomitant]
     Active Substance: AZATHIOPRINE SODIUM
     Dosage: 50 MG, 3X/DAY (EVERY 8 HOURS, 1-1-1)
     Route: 048
     Dates: start: 20110101
  6. SEGURIL [Concomitant]
     Active Substance: FUROSEMIDE
     Dosage: 40 MG, 1X/DAY (1X/DAY 1-0-0)
     Route: 048
     Dates: start: 20170302
  7. EPLERENONA [Concomitant]
     Active Substance: EPLERENONE
     Dosage: 25 MG, 1X/DAY (1X/DAY 1-0-0)
     Route: 048
     Dates: start: 20170302
  8. CARDYL [Suspect]
     Active Substance: ATORVASTATIN CALCIUM
     Dosage: 80 MG, 1X/DAY (EVERY 24H, 0-0-1)
     Route: 048
     Dates: start: 20170302, end: 20170428
  9. CLAVERSAL [Concomitant]
     Active Substance: MESALAMINE
     Dosage: 1 G, 2X/DAY (EVERY 12H, 0-2-2)
     Route: 048
     Dates: start: 20110101
  10. SEREVENT DISKUS [Concomitant]
     Active Substance: SALMETEROL XINAFOATE
     Dosage: 1-0-1
     Route: 055
     Dates: start: 20090101
  11. EKLIRA GENUAIR [Concomitant]
     Active Substance: ACLIDINIUM BROMIDE
     Dosage: 1-0-1
     Route: 055
     Dates: start: 20090101
  12. BISOPROLOL [Concomitant]
     Active Substance: BISOPROLOL
     Dosage: 2.5 MG, 1X/DAY (EVERY 24H, 1-0-0)
     Route: 048
     Dates: start: 20170302
  13. ADIRO [Concomitant]
     Active Substance: ASPIRIN
     Dosage: 100 MG, 1X/DAY (EVERY 24H, 0-1-0)
     Route: 048
     Dates: start: 20170302
  14. EDOXABAN [Concomitant]
     Active Substance: EDOXABAN TOSYLATE
     Dosage: 60 MG, 1X/DAY
     Route: 048
     Dates: start: 20170302

REACTIONS (3)
  - Hepatitis acute [Recovered/Resolved]
  - Asthenia [Recovered/Resolved]
  - Rhabdomyolysis [Recovered/Resolved]

NARRATIVE: CASE EVENT DATE: 20170318
